FAERS Safety Report 6693949-0 (Version None)
Quarter: 2010Q2

REPORT INFORMATION
  Report Type: 
  Country: None (occurrence: None)
  Receive Date: 20100423
  Receipt Date: 20100413
  Transmission Date: 20101027
  Serious: Yes (Life-Threatening)
  Sender: FDA-Public Use
  Company Number: FR-PFIZER INC-2010046149

PATIENT
  Age: 59 Year
  Sex: Male

DRUGS (9)
  1. NEURONTIN [Suspect]
     Dosage: 1 DF, 1X/DAY
     Route: 048
     Dates: start: 20100121, end: 20100122
  2. BACLOFEN [Concomitant]
     Dosage: UNK
     Route: 048
  3. COVERSYL [Concomitant]
     Dosage: 1 DF, 1X/DAY
     Route: 048
     Dates: end: 20100123
  4. LOVENOX [Concomitant]
  5. DANTRIUM [Concomitant]
  6. 3,4-DIAMINOPYRIDINE [Concomitant]
  7. TAMSULOSIN HCL [Concomitant]
  8. LEVOCARNIL [Concomitant]
  9. TROSPIUM CHLORIDE [Concomitant]

REACTIONS (3)
  - COMA [None]
  - HYPOTENSION [None]
  - HYPOTHERMIA [None]
